FAERS Safety Report 24387744 (Version 1)
Quarter: 2024Q4

REPORT INFORMATION
  Report Type: Spontaneous
  Country: US (occurrence: None)
  Receive Date: 20241001
  Receipt Date: 20241001
  Transmission Date: 20250115
  Serious: Yes (Hospitalization)
  Sender: Public
  Company Number: None

PATIENT
  Age: 90 Year
  Sex: Male
  Weight: 86 kg

DRUGS (1)
  1. METHOTREXATE SODIUM [Suspect]
     Active Substance: METHOTREXATE SODIUM
     Indication: Psoriasis
     Dosage: OTHER FREQUENCY : QWEEK;?
     Route: 048

REACTIONS (3)
  - Dizziness [None]
  - Vomiting [None]
  - Seizure [None]

NARRATIVE: CASE EVENT DATE: 20231204
